FAERS Safety Report 5581749-4 (Version None)
Quarter: 2008Q1

REPORT INFORMATION
  Report Type: 
  Country: None (occurrence: None)
  Receive Date: 20080104
  Receipt Date: 20070406
  Transmission Date: 20080703
  Serious: Yes (Hospitalization)
  Sender: FDA-Public Use
  Company Number: US-ASTRAZENECA-2007UW25295

PATIENT
  Age: 18846 Day
  Sex: Female
  Weight: 86.4 kg

DRUGS (7)
  1. SEROQUEL [Suspect]
     Indication: PSYCHOTIC DISORDER
     Route: 048
     Dates: start: 19980101, end: 20020101
  2. SEROQUEL [Suspect]
     Indication: SCHIZOPHRENIA, PARANOID TYPE
     Route: 048
     Dates: start: 19980101, end: 20020101
  3. SEROQUEL [Suspect]
     Indication: INSOMNIA
     Route: 048
     Dates: start: 19980101, end: 20020101
  4. SEROQUEL [Suspect]
     Route: 048
     Dates: start: 20040123, end: 20060501
  5. SEROQUEL [Suspect]
     Route: 048
     Dates: start: 20040123, end: 20060501
  6. SEROQUEL [Suspect]
     Route: 048
     Dates: start: 20040123, end: 20060501
  7. RISPERDAL [Concomitant]

REACTIONS (8)
  - BLOOD SODIUM DECREASED [None]
  - CHEST PAIN [None]
  - COLONOSCOPY [None]
  - CONVULSION [None]
  - DIABETES MELLITUS [None]
  - HEADACHE [None]
  - SCHIZOPHRENIA, PARANOID TYPE [None]
  - SUICIDAL IDEATION [None]
